FAERS Safety Report 6608787 (Version 13)
Quarter: 2014Q4

REPORT INFORMATION
  Report Type: Report from Study
  Country: GB (occurrence: GB)
  Receive Date: 20080407
  Receipt Date: 20141114
  Transmission Date: 20150529
  Serious: Yes (Hospitalization, Other)
  Sender: FDA-Public Use
  Company Number: PHHO2008GB04149

PATIENT
  Age: 24 Year
  Sex: Female
  Weight: 44.4 kg

DRUGS (11)
  1. PREGABALIN. [Concomitant]
     Active Substance: PREGABALIN
  2. SENNA [Concomitant]
     Active Substance: SENNA LEAF\SENNOSIDES\SENNOSIDES A AND B
     Dosage: UNK
  3. AMITRIPTYLINE [Suspect]
     Active Substance: AMITRIPTYLINE
  4. FERROUS SULFATE [Concomitant]
     Active Substance: FERROUS SULFATE\FERROUS SULFATE, DRIED
  5. PEGASYS [Suspect]
     Active Substance: PEGINTERFERON ALFA-2A
     Dosage: 180 UG, WEEKLY
     Route: 058
     Dates: start: 20070831, end: 20071130
  6. DULOXETINE [Suspect]
     Active Substance: DULOXETINE
  7. AUGMENTIN [Concomitant]
     Active Substance: AMOXICILLIN\CLAVULANATE POTASSIUM
  8. BISACODYL. [Concomitant]
     Active Substance: BISACODYL
  9. LDT600 [Suspect]
     Active Substance: TELBIVUDINE
     Dosage: 600 MG, QD
     Route: 048
     Dates: start: 20070831, end: 20071130
  10. CHLORAMPHENICOL [Concomitant]
     Active Substance: CHLORAMPHENICOL
  11. FYBOGEL [Concomitant]
     Active Substance: PLANTAGO OVATA SEED

REACTIONS (47)
  - Gait disturbance [Recovering/Resolving]
  - Feeling guilty [Unknown]
  - Memory impairment [Unknown]
  - Abulia [Unknown]
  - Pain in extremity [Unknown]
  - Vibration test abnormal [Recovering/Resolving]
  - Sensory loss [Recovering/Resolving]
  - Sensory disturbance [Recovering/Resolving]
  - Nightmare [Unknown]
  - Hypervigilance [Unknown]
  - Anger [Unknown]
  - Jaundice [Unknown]
  - Vision blurred [Unknown]
  - Visual acuity reduced [Unknown]
  - Muscle spasms [Recovering/Resolving]
  - Crying [Unknown]
  - Suicidal ideation [Unknown]
  - Insomnia [Unknown]
  - Abnormal behaviour [Unknown]
  - Anxiety [Unknown]
  - Thinking abnormal [Unknown]
  - Feelings of worthlessness [Unknown]
  - Neuropathy peripheral [Recovered/Resolved]
  - Paraesthesia [Recovering/Resolving]
  - Depression [Unknown]
  - Mood swings [Unknown]
  - Irritability [Unknown]
  - Fatigue [Unknown]
  - Eye pain [Unknown]
  - Pain [Recovering/Resolving]
  - Hypersomnia [Unknown]
  - Somnolence [Unknown]
  - Emotional distress [Unknown]
  - Decreased appetite [Unknown]
  - Menorrhagia [Unknown]
  - Hepatic pain [Unknown]
  - Neuralgia [Recovering/Resolving]
  - Depressed mood [Unknown]
  - Social avoidant behaviour [Unknown]
  - Pallor [Unknown]
  - Iron deficiency [Recovered/Resolved]
  - Burning sensation [Recovering/Resolving]
  - Hypoaesthesia [Recovering/Resolving]
  - Clumsiness [Recovering/Resolving]
  - Intentional self-injury [Unknown]
  - Self esteem decreased [Unknown]
  - Disturbance in attention [Unknown]

NARRATIVE: CASE EVENT DATE: 200711
